FAERS Safety Report 9342849 (Version 4)
Quarter: 2013Q3

REPORT INFORMATION
  Report Type: Spontaneous
  Country: US (occurrence: US)
  Receive Date: 20130611
  Receipt Date: 20130715
  Transmission Date: 20140515
  Serious: Yes (Disabling, Other)
  Sender: FDA-Public Use
  Company Number: US-GLAXOSMITHKLINE-A1025852A

PATIENT
  Age: 72 Year
  Sex: Female

DRUGS (4)
  1. VOTRIENT [Suspect]
     Indication: RENAL CELL CARCINOMA
     Dosage: 400MG PER DAY
     Route: 048
     Dates: start: 20130119
  2. AMLODIPINE [Concomitant]
  3. HCTZ [Concomitant]
  4. SYNTHROID [Concomitant]

REACTIONS (7)
  - Hypertension [Unknown]
  - Hypotension [Not Recovered/Not Resolved]
  - Fatigue [Unknown]
  - Asthenia [Not Recovered/Not Resolved]
  - Hepatic enzyme increased [Recovered/Resolved]
  - Malaise [Unknown]
  - Drug administration error [Unknown]
